FAERS Safety Report 14009958 (Version 3)
Quarter: 2018Q1

REPORT INFORMATION
  Report Type: Spontaneous
  Country: GB (occurrence: GB)
  Receive Date: 20170925
  Receipt Date: 20180320
  Transmission Date: 20180508
  Serious: Yes (Other)
  Sender: FDA-Public Use
  Company Number: GB-MYLANLABS-2017M1060354

PATIENT
  Age: 24 Year
  Sex: Male

DRUGS (5)
  1. CLOZARIL [Suspect]
     Active Substance: CLOZAPINE
     Dosage: 650 MG, UNK
     Route: 048
     Dates: start: 201709
  2. CLOZARIL [Suspect]
     Active Substance: CLOZAPINE
     Dosage: 850 MG, UNK
     Route: 048
  3. CLOZARIL [Suspect]
     Active Substance: CLOZAPINE
     Dosage: 500 MG, UNK
     Route: 048
     Dates: start: 201707
  4. CLOZARIL [Suspect]
     Active Substance: CLOZAPINE
     Indication: SCHIZOPHRENIA
     Dosage: UNK
     Route: 048
     Dates: start: 20170426
  5. CLOZARIL [Suspect]
     Active Substance: CLOZAPINE
     Dosage: 650 MG, UNK
     Route: 048
     Dates: start: 201708

REACTIONS (3)
  - Mental disorder [Unknown]
  - Antipsychotic drug level decreased [Not Recovered/Not Resolved]
  - Constipation [Unknown]

NARRATIVE: CASE EVENT DATE: 20170701
